FAERS Safety Report 5066647-7 (Version None)
Quarter: 2006Q3

REPORT INFORMATION
  Report Type: 
  Country: None (occurrence: None)
  Receive Date: 20060728
  Receipt Date: 20060714
  Transmission Date: 20061208
  Serious: Yes (Hospitalization, Other)
  Sender: FDA-Public Use
  Company Number: 2006088635

PATIENT
  Age: 74 Year
  Sex: Male
  Weight: 79.8331 kg

DRUGS (19)
  1. DILANTIN KAPSEAL [Suspect]
     Indication: CONVULSION
     Dosage: 400 MG 400 MG, 1 IN 1 D), ORAL
     Route: 048
     Dates: start: 20030211, end: 20030317
  2. CEREBYX [Suspect]
     Indication: CONVULSION
     Dosage: 1 GRAM (1 D), INTRAVENOUS
     Route: 042
     Dates: start: 20030211, end: 20030216
  3. PLAVIX [Suspect]
     Indication: ATRIAL FIBRILLATION
     Dosage: 75 MG (75 MG, 1 IN 1 D), ORAL
     Route: 048
     Dates: start: 20030205, end: 20030301
  4. PLAVIX [Suspect]
     Indication: CEREBROVASCULAR ACCIDENT
     Dosage: 75 MG (75 MG, 1 IN 1 D), ORAL
     Route: 048
     Dates: start: 20030205, end: 20030301
  5. MACROBID [Suspect]
     Indication: URINARY TRACT INFECTION
     Dosage: 200 MG (100 MG, 2 IN 1 D), ORAL
     Route: 048
     Dates: start: 20030309, end: 20030315
  6. TAMSULOSIN HCL [Concomitant]
  7. HYDROCHLOROTHIAZIDE [Concomitant]
  8. K-DUR 10 [Concomitant]
  9. KEFLEX [Concomitant]
  10. LEVAQUIN [Concomitant]
  11. MICARDIS HCT [Concomitant]
  12. NORVASC [Concomitant]
  13. TOPROL-XL [Concomitant]
  14. PROMETHAZINE [Concomitant]
  15. ZOFRAN [Concomitant]
  16. CORTISPORIN OINTMENT (BACITRACIN ZINC, HYDROCORTISONE, NEOMYCIN SULFAT [Concomitant]
  17. ASPIRIN [Concomitant]
  18. PERI-COLACE [Concomitant]
  19. ZINCATE (ZINC SULFATE) [Concomitant]

REACTIONS (23)
  - ANAEMIA [None]
  - ANURIA [None]
  - BENIGN PROSTATIC HYPERPLASIA [None]
  - CANDIDIASIS [None]
  - CATHETER RELATED COMPLICATION [None]
  - CEREBRAL INFARCTION [None]
  - CEREBROVASCULAR ACCIDENT [None]
  - CHEST PAIN [None]
  - CONVULSION [None]
  - DRUG HYPERSENSITIVITY [None]
  - DYSPHAGIA [None]
  - HAEMORRHAGE URINARY TRACT [None]
  - INCORRECT DOSE ADMINISTERED [None]
  - INGUINAL HERNIA [None]
  - LOSS OF CONSCIOUSNESS [None]
  - MALNUTRITION [None]
  - MENTAL STATUS CHANGES [None]
  - NAUSEA [None]
  - RENAL FAILURE [None]
  - SINUSITIS [None]
  - STEVENS-JOHNSON SYNDROME [None]
  - SWELLING FACE [None]
  - URINARY TRACT INFECTION [None]
